FAERS Safety Report 26200888 (Version 1)
Quarter: 2025Q4

REPORT INFORMATION
  Report Type: Spontaneous
  Country: US (occurrence: US)
  Receive Date: 20251226
  Receipt Date: 20251226
  Transmission Date: 20260118
  Serious: Yes (Other)
  Sender: AMGEN
  Company Number: US-AMGEN-USASP2025250961

PATIENT
  Age: 40 Year
  Sex: Male

DRUGS (6)
  1. PREDNISONE [Suspect]
     Active Substance: PREDNISONE
     Indication: Eye infection syphilitic
     Dosage: 60 MILLIGRAM
     Route: 048
  2. PREDNISONE [Suspect]
     Active Substance: PREDNISONE
     Dosage: UNK (SLOW TAPER BY 10 MG EVERY WEEK)
     Route: 048
  3. FOSCARNET [Concomitant]
     Active Substance: FOSCARNET
     Dosage: UNK (2.4MG/0.1ML)
  4. PREDNISOLONE [Concomitant]
     Active Substance: PREDNISOLONE
     Dosage: UNK, Q2H (1%)
  5. CYCLOPENTOLATE [Concomitant]
     Active Substance: CYCLOPENTOLATE
     Dosage: UNK, BID (1%)
  6. PENICILLIN [Concomitant]
     Active Substance: PENICILLIN
     Indication: Eye infection syphilitic
     Dosage: UNK
     Route: 040

REACTIONS (6)
  - Iris adhesions [Unknown]
  - Cataract [Unknown]
  - Tractional retinal detachment [Unknown]
  - Cystoid macular oedema [Unknown]
  - Drug effective for unapproved indication [Unknown]
  - Off label use [Unknown]
